FAERS Safety Report 8271411-1 (Version None)
Quarter: 2012Q2

REPORT INFORMATION
  Report Type: 
  Country: None (occurrence: None)
  Receive Date: 20120410
  Receipt Date: 20120329
  Transmission Date: 20120825
  Serious: Yes (Other)
  Sender: FDA-Public Use
  Company Number: PHHY2012FR029084

PATIENT
  Sex: Female

DRUGS (3)
  1. PARLODEL [Suspect]
     Indication: PARKINSON'S DISEASE
     Dosage: 30 MG, QD
     Dates: start: 20040401, end: 20080401
  2. TRIVASTAL [Suspect]
     Dosage: 400 MG, DAILY
     Route: 048
     Dates: start: 20080401
  3. TRIVASTAL [Suspect]
     Indication: PARKINSON'S DISEASE
     Dosage: 200 MG, DAILY
     Route: 048
     Dates: start: 20050101

REACTIONS (6)
  - STEREOTYPY [None]
  - HYPERSEXUALITY [None]
  - COMPULSIVE SHOPPING [None]
  - OBSESSIVE-COMPULSIVE DISORDER [None]
  - PSYCHOMOTOR HYPERACTIVITY [None]
  - IMPULSE-CONTROL DISORDER [None]
